FAERS Safety Report 24765660 (Version 2)
Quarter: 2025Q1

REPORT INFORMATION
  Report Type: Spontaneous
  Country: US (occurrence: US)
  Receive Date: 20241223
  Receipt Date: 20250113
  Transmission Date: 20250409
  Serious: No
  Sender: ROCHE
  Company Number: US-ROCHE-10000162682

PATIENT
  Age: 50 Year
  Weight: 69.4 kg

DRUGS (13)
  1. OCREVUS [Suspect]
     Active Substance: OCRELIZUMAB
     Indication: Multiple sclerosis
     Route: 065
  2. SODIUM CHLORIDE [Concomitant]
     Active Substance: SODIUM CHLORIDE
  3. TYLENOL [Concomitant]
     Active Substance: ACETAMINOPHEN
     Indication: Pain
     Route: 048
  4. ALBUTEROL SULFATE [Concomitant]
     Active Substance: ALBUTEROL SULFATE
     Route: 055
  5. XANAX [Concomitant]
     Active Substance: ALPRAZOLAM
  6. ELAVIL [Concomitant]
     Active Substance: AMITRIPTYLINE HYDROCHLORIDE
     Indication: Anxiety
  7. ELAVIL [Concomitant]
     Active Substance: AMITRIPTYLINE HYDROCHLORIDE
     Indication: Depression
  8. TESSALON [Concomitant]
     Active Substance: BENZONATATE
     Indication: Cough
     Dosage: TAKE 1 CAPSULE BY MOUTH EVERY 4 HOURS AS CAPSULE NEEDED FOR COUGH
  9. ZYRTEC [Concomitant]
     Active Substance: CETIRIZINE HYDROCHLORIDE
  10. PERIDEX [Concomitant]
     Active Substance: CHLORHEXIDINE GLUCONATE
     Dosage: 0.12% SWISH 1/2 OUNCES FOR 30 SECONDS TWICE A DAY SOLUTION FOR 1 WEEK
  11. VOLTAREN [Concomitant]
     Active Substance: DICLOFENAC SODIUM
  12. EPIPEN [Concomitant]
     Active Substance: EPINEPHRINE
     Indication: Anaphylactic reaction
  13. FLONASE [Concomitant]
     Active Substance: FLUTICASONE PROPIONATE

REACTIONS (2)
  - Product storage error [Unknown]
  - No adverse event [Unknown]
